FAERS Safety Report 5778850-9 (Version None)
Quarter: 2008Q2

REPORT INFORMATION
  Report Type: 
  Country: None (occurrence: None)
  Receive Date: 20080611
  Receipt Date: 20080430
  Transmission Date: 20081010
  Serious: Yes (Disabling)
  Sender: FDA-Public Use
  Company Number: LUP-0280

PATIENT
  Age: 76 Year
  Sex: Male

DRUGS (4)
  1. SIMVASTATIN [Suspect]
     Indication: HYPERCHOLESTEROLAEMIA
     Dosage: 40 MG QD PO
     Route: 048
     Dates: start: 20070401, end: 20080101
  2. PLAVIX [Concomitant]
  3. GLYBURIDE [Concomitant]
  4. ALLERGY MEDICATION [Concomitant]

REACTIONS (1)
  - MUSCLE SPASMS [None]
